FAERS Safety Report 18416190 (Version 1)
Quarter: 2020Q4

REPORT INFORMATION
  Report Type: Spontaneous
  Country: US (occurrence: US)
  Receive Date: 20201022
  Receipt Date: 20201022
  Transmission Date: 20210114
  Serious: Yes (Other)
  Sender: FDA-Public Use
  Company Number: US-BAYER-2020-220113

PATIENT
  Sex: Male

DRUGS (3)
  1. ASPIRIN (PAIN AND FEVER) [Suspect]
     Active Substance: ASPIRIN
     Dosage: 0.5 DF
     Route: 048
  2. ACETYLSALICYLIC ACID [Suspect]
     Active Substance: ASPIRIN
  3. ASPIRIN (PAIN AND FEVER) [Suspect]
     Active Substance: ASPIRIN
     Dosage: 0.25 UNK

REACTIONS (6)
  - Product label confusion [None]
  - Drug dependence [Unknown]
  - Asthenia [Unknown]
  - Headache [Unknown]
  - Drug ineffective [Unknown]
  - Incorrect dose administered [Unknown]
